FAERS Safety Report 17517643 (Version 1)
Quarter: 2020Q1

REPORT INFORMATION
  Report Type: Spontaneous
  Country: DE (occurrence: DE)
  Receive Date: 20200309
  Receipt Date: 20200309
  Transmission Date: 20200409
  Serious: Yes (Death, Other)
  Sender: FDA-Public Use
  Company Number: DE-MYLANLABS-2020M1023957

PATIENT
  Age: 18 Year
  Sex: Female

DRUGS (6)
  1. CICLOSPORIN [Suspect]
     Active Substance: CYCLOSPORINE
     Indication: IMMUNOSUPPRESSANT DRUG THERAPY
     Dosage: UNK
     Route: 065
  2. MYCOPHENOLATE MOFETIL. [Suspect]
     Active Substance: MYCOPHENOLATE MOFETIL
     Indication: IMMUNOSUPPRESSANT DRUG THERAPY
     Dosage: UNK
     Route: 065
  3. FLUDARABINE [Suspect]
     Active Substance: FLUDARABINE PHOSPHATE
     Indication: ALLOGENIC STEM CELL TRANSPLANTATION
     Dosage: 160 MILLIGRAM/SQ. METER, 4 DOSAGES 40 MG/M2
  4. TREOSULFAN [Suspect]
     Active Substance: TREOSULFAN
     Indication: ALLOGENIC STEM CELL TRANSPLANTATION
     Dosage: 42 MILLIGRAM/SQ. METER, 3 DOSAGES 14 MG/M2
     Route: 065
  5. THIOTEPA. [Suspect]
     Active Substance: THIOTEPA
     Indication: ALLOGENIC STEM CELL TRANSPLANTATION
     Dosage: 10 MILLIGRAM/KILOGRAM, 2 DOSAGES 5 MG/KG
     Route: 065
  6. ANTITHYMOCYTE IMMUNOGLOBULIN [Suspect]
     Active Substance: THYMOCYTE IMMUNE GLOBULIN NOS
     Indication: ALLOGENIC STEM CELL TRANSPLANTATION
     Dosage: 45 MILLIGRAM/KILOGRAM, 3 DOSAGES 15 MG/KG

REACTIONS (8)
  - Multiple organ dysfunction syndrome [Fatal]
  - Acute graft versus host disease in skin [Unknown]
  - Cytomegalovirus infection [Recovered/Resolved]
  - Encephalitis viral [Unknown]
  - Adenovirus infection [Recovered/Resolved]
  - Acute graft versus host disease in intestine [Unknown]
  - Human herpesvirus 6 infection [Unknown]
  - Diarrhoea [Unknown]
